FAERS Safety Report 8919852 (Version 1)
Quarter: 2012Q4

REPORT INFORMATION
  Report Type: 
  Country: CN (occurrence: CN)
  Receive Date: 20121121
  Receipt Date: 20121121
  Transmission Date: 20130627
  Serious: Yes (Other)
  Sender: FDA-Public Use
  Company Number: CN-PFIZER INC-2012291324

PATIENT

DRUGS (2)
  1. ZOLOFT [Suspect]
     Indication: EPILEPSY
     Dosage: 125mg daily
     Route: 048
     Dates: start: 20120920
  2. ZOLOFT [Suspect]
     Indication: DEPRESSION

REACTIONS (3)
  - Mania [Unknown]
  - Suicidal ideation [Unknown]
  - Condition aggravated [Unknown]
